FAERS Safety Report 24146345 (Version 1)
Quarter: 2024Q3

REPORT INFORMATION
  Report Type: Spontaneous
  Country: US (occurrence: None)
  Receive Date: 20240729
  Receipt Date: 20240729
  Transmission Date: 20241016
  Serious: No
  Sender: ASTRAZENECA
  Company Number: 2024A165544

PATIENT

DRUGS (2)
  1. TEZSPIRE [Suspect]
     Active Substance: TEZEPELUMAB-EKKO
  2. PREDNISONE [Concomitant]
     Active Substance: PREDNISONE
     Dosage: DAILY

REACTIONS (5)
  - Palpitations [Recovered/Resolved]
  - Hypersensitivity [Unknown]
  - Nasal crusting [Unknown]
  - Illness [Unknown]
  - Asthma [Unknown]
